FAERS Safety Report 9694122 (Version 1)
Quarter: 2013Q4

REPORT INFORMATION
  Report Type: Spontaneous
  Country: US (occurrence: US)
  Receive Date: 20131118
  Receipt Date: 20131118
  Transmission Date: 20140711
  Serious: No
  Sender: FDA-Public Use
  Company Number: US-009507513-1311USA005453

PATIENT
  Age: 10 Year
  Sex: Male

DRUGS (2)
  1. SINGULAIR [Suspect]
     Indication: MULTIPLE ALLERGIES
     Dosage: 1 TAB, QD, PO
     Route: 048
  2. SINGULAIR [Suspect]
     Indication: ASTHMA
     Dosage: 1 TAB, QD, PO
     Route: 048

REACTIONS (9)
  - Affective disorder [Unknown]
  - Anxiety [Unknown]
  - Emotional distress [Unknown]
  - Fear [Unknown]
  - Impulse-control disorder [Unknown]
  - Insomnia [Unknown]
  - Psychotic disorder [Unknown]
  - Thinking abnormal [Unknown]
  - Tic [Unknown]
